FAERS Safety Report 17490058 (Version 1)
Quarter: 2020Q1

REPORT INFORMATION
  Report Type: Spontaneous
  Country: US (occurrence: US)
  Receive Date: 20200303
  Receipt Date: 20200303
  Transmission Date: 20200409
  Serious: No
  Sender: FDA-Public Use
  Company Number: US-AKORN PHARMACEUTICALS-2020AKN00024

PATIENT
  Age: 20 Year
  Sex: Female
  Weight: 59.86 kg

DRUGS (12)
  1. ABSORICA [Suspect]
     Active Substance: ISOTRETINOIN
     Indication: ACNE CYSTIC
     Dosage: FOR A TOTAL OF 50 MG PER DAY
     Dates: start: 20190910, end: 2019
  2. MYORISAN [Suspect]
     Active Substance: ISOTRETINOIN
     Dosage: 60 MG, 1X/DAY
     Dates: start: 201912, end: 201912
  3. ABSORICA [Suspect]
     Active Substance: ISOTRETINOIN
     Indication: ACNE CYSTIC
     Dosage: FOR A TOTAL OF 50 MG PER DAY
     Dates: start: 20190910, end: 2019
  4. ABSORICA [Suspect]
     Active Substance: ISOTRETINOIN
     Indication: SCAR
  5. MYORISAN [Suspect]
     Active Substance: ISOTRETINOIN
     Dosage: 30 MG, 1X/DAY
     Dates: start: 201912, end: 202001
  6. ABSORICA [Suspect]
     Active Substance: ISOTRETINOIN
     Indication: SCAR
  7. MYORISAN [Suspect]
     Active Substance: ISOTRETINOIN
     Indication: ACNE CYSTIC
     Dosage: 30 MG, 1X/DAY
     Dates: start: 20190709, end: 201908
  8. MYORISAN [Suspect]
     Active Substance: ISOTRETINOIN
     Indication: SCAR
     Dosage: FOR A TOTAL OF 50 MG ONCE DAILY
     Dates: start: 201911, end: 201912
  9. MYORISAN [Suspect]
     Active Substance: ISOTRETINOIN
     Indication: ACNE CYSTIC
     Dosage: 40 MG, 1X/DAY
     Dates: start: 20190814, end: 201909
  10. MYORISAN [Suspect]
     Active Substance: ISOTRETINOIN
     Indication: SCAR
  11. MYORISAN [Suspect]
     Active Substance: ISOTRETINOIN
     Indication: ACNE CYSTIC
     Dosage: FOR A TOTAL OF 50 MG PER DAY
     Dates: start: 20191119, end: 201912
  12. MYORISAN [Suspect]
     Active Substance: ISOTRETINOIN
     Indication: SCAR

REACTIONS (5)
  - Off label use [Recovered/Resolved]
  - Treatment noncompliance [Recovered/Resolved]
  - Headache [Unknown]
  - Drug ineffective [Recovered/Resolved]
  - Paranasal sinus discomfort [Unknown]

NARRATIVE: CASE EVENT DATE: 20190709
